FAERS Safety Report 12067093 (Version 2)
Quarter: 2016Q1

REPORT INFORMATION
  Report Type: Spontaneous
  Country: FR (occurrence: FR)
  Receive Date: 20160211
  Receipt Date: 20160314
  Transmission Date: 20160526
  Serious: Yes (Hospitalization)
  Sender: FDA-Public Use
  Company Number: FR-009507513-1602FRA003812

PATIENT
  Sex: Male

DRUGS (11)
  1. IMODIUM [Suspect]
     Active Substance: LOPERAMIDE HYDROCHLORIDE
     Indication: DIARRHOEA
     Dosage: AFTER EACH LIQUID STOOL
     Dates: start: 20151222
  2. SOLUPRED [Suspect]
     Active Substance: PREDNISOLONE
     Dosage: 3 TAB AT 20 MG IN THE MORNING
     Route: 048
  3. SPASFON [Suspect]
     Active Substance: PHLOROGLUCINOL
     Indication: GASTROINTESTINAL DISORDER
     Dosage: 80 MG, TID
     Route: 048
     Dates: start: 20151222
  4. ZOPHREN (ONDANSETRON) [Suspect]
     Active Substance: ONDANSETRON
     Indication: VOMITING
     Dosage: UNK
     Route: 048
  5. INEGY [Concomitant]
     Active Substance: EZETIMIBE\SIMVASTATIN
     Dosage: UNK
     Route: 048
  6. INEXIUM (ESOMEPRAZOLE MAGNESIUM) [Concomitant]
     Active Substance: ESOMEPRAZOLE MAGNESIUM
     Dosage: UNK
  7. TEMODAL [Suspect]
     Active Substance: TEMOZOLOMIDE
     Indication: GLIOBLASTOMA
     Dosage: 2 X 60 MG DURING 5 DAYS
     Route: 048
     Dates: start: 20140522
  8. BACTRIM [Suspect]
     Active Substance: SULFAMETHOXAZOLE\TRIMETHOPRIM
     Dosage: UNK, TIW
     Route: 048
  9. DIFFU-K [Concomitant]
     Active Substance: POTASSIUM CHLORIDE
     Dosage: UNK
  10. LERCAN [Concomitant]
     Active Substance: LERCANIDIPINE
     Dosage: UNK
  11. SMECTA [Suspect]
     Active Substance: MONTMORILLONITE
     Indication: GASTROINTESTINAL DISORDER
     Dosage: 2 AT NOON
     Route: 048
     Dates: start: 20151222

REACTIONS (2)
  - Intussusception [Recovered/Resolved]
  - Gastrointestinal disorder [Not Recovered/Not Resolved]
